FAERS Safety Report 9966673 (Version 2)
Quarter: 2014Q1

REPORT INFORMATION
  Report Type: Report from Study
  Country: US (occurrence: US)
  Receive Date: 20140305
  Receipt Date: 20140305
  Transmission Date: 20141002
  Serious: Yes (Other)
  Sender: FDA-Public Use
  Company Number: US-ABBVIE-13P-163-1097209-00

PATIENT
  Age: 51 Year
  Sex: Male
  Weight: 92.16 kg

DRUGS (2)
  1. HUMIRA [Suspect]
     Indication: COLITIS ULCERATIVE
     Route: 058
     Dates: start: 201303
  2. LIALDA [Concomitant]
     Indication: COLITIS ULCERATIVE
     Dosage: 1.2 GRAMS, 4 TABS DAILY

REACTIONS (2)
  - Thrombosis [Not Recovered/Not Resolved]
  - Pain in extremity [Not Recovered/Not Resolved]
